FAERS Safety Report 8493665-9 (Version None)
Quarter: 2012Q3

REPORT INFORMATION
  Report Type: 
  Country: None (occurrence: None)
  Receive Date: 20120706
  Receipt Date: 20120627
  Transmission Date: 20120928
  Serious: Yes (Other)
  Sender: FDA-Public Use
  Company Number: US-ASTRAZENECA-2012SE43913

PATIENT
  Age: 78 Year
  Sex: Female

DRUGS (5)
  1. ARIMIDEX [Suspect]
     Route: 048
     Dates: start: 20110607
  2. CLONIDINE [Concomitant]
     Indication: BLOOD PRESSURE ABNORMAL
  3. LORAZEPAM [Concomitant]
     Indication: ANXIETY
  4. MULTIVITAMINS FOR WOMEN [Concomitant]
  5. LORAZEPAM [Concomitant]
     Indication: NERVOUSNESS

REACTIONS (13)
  - FEELING ABNORMAL [None]
  - ANXIETY [None]
  - BLOOD PRESSURE ABNORMAL [None]
  - HEADACHE [None]
  - CATARACT [None]
  - BODY HEIGHT DECREASED [None]
  - NAUSEA [None]
  - DIZZINESS [None]
  - BREAST CANCER METASTATIC [None]
  - APHAGIA [None]
  - NERVOUSNESS [None]
  - RECURRENT CANCER [None]
  - DECREASED APPETITE [None]
